FAERS Safety Report 6817918-2 (Version None)
Quarter: 2010Q3

REPORT INFORMATION
  Report Type: 
  Country: None (occurrence: None)
  Receive Date: 20100706
  Receipt Date: 20100625
  Transmission Date: 20110219
  Serious: Yes (Hospitalization)
  Sender: FDA-Public Use
  Company Number: US-CELGENEUS-163-21880-10062769

PATIENT
  Sex: Female

DRUGS (4)
  1. REVLIMID [Suspect]
     Indication: MULTIPLE MYELOMA
     Route: 048
     Dates: start: 20090701, end: 20100101
  2. REVLIMID [Suspect]
     Route: 048
     Dates: start: 20070601, end: 20080101
  3. REVLIMID [Suspect]
     Route: 048
     Dates: start: 20090301, end: 20090501
  4. REVLIMID [Suspect]
     Route: 048
     Dates: start: 20100601

REACTIONS (3)
  - COMA [None]
  - PNEUMONIA [None]
  - UPPER RESPIRATORY TRACT INFECTION [None]
